FAERS Safety Report 8356930-1 (Version None)
Quarter: 2012Q2

REPORT INFORMATION
  Report Type: 
  Country: None (occurrence: None)
  Receive Date: 20120514
  Receipt Date: 20120511
  Transmission Date: 20120825
  Serious: Yes (Other)
  Sender: FDA-Public Use
  Company Number: DE-PFIZER INC-2012082402

PATIENT
  Age: 47 Year
  Sex: Female
  Weight: 67 kg

DRUGS (3)
  1. LYRICA [Suspect]
     Indication: POST HERPETIC NEURALGIA
     Dosage: 100 MG, 2X/DAY
     Dates: start: 20120218, end: 20120328
  2. LYRICA [Suspect]
     Indication: POLYNEUROPATHY
     Dosage: 100 MG, DAILY
  3. LYRICA [Suspect]
     Dosage: 75 MG, 2X/DAY
     Dates: end: 20120328

REACTIONS (3)
  - DEMENTIA [None]
  - DISTURBANCE IN ATTENTION [None]
  - THINKING ABNORMAL [None]
